FAERS Safety Report 8849376 (Version 2)
Quarter: 2012Q4

REPORT INFORMATION
  Report Type: 
  Country: US (occurrence: US)
  Receive Date: 20121017
  Receipt Date: 20121029
  Transmission Date: 20130627
  Serious: No
  Sender: FDA-Public Use
  Company Number: US-VERTEX PHARMACEUTICAL INC.-2012-022537

PATIENT
  Age: 56 Year
  Sex: Male
  Weight: 107 kg

DRUGS (3)
  1. INCIVEK [Suspect]
     Indication: HEPATITIS C
     Dosage: 750 mg, tid
     Route: 048
     Dates: start: 20120922
  2. COPEGUS [Suspect]
     Indication: HEPATITIS C
     Dosage: 3 DF, bid
     Route: 048
     Dates: start: 20120922
  3. PEGASYS [Suspect]
     Indication: HEPATITIS C
     Dosage: 180 �g, qw
     Route: 058
     Dates: start: 20120922

REACTIONS (6)
  - Drug dose omission [Recovered/Resolved]
  - Influenza like illness [Not Recovered/Not Resolved]
  - Painful defaecation [Recovered/Resolved]
  - Rash pruritic [Not Recovered/Not Resolved]
  - Diarrhoea [Recovered/Resolved]
  - Anorectal discomfort [Not Recovered/Not Resolved]
